FAERS Safety Report 9887406 (Version 1)
Quarter: 2014Q1

REPORT INFORMATION
  Report Type: Spontaneous
  Country: US (occurrence: None)
  Receive Date: 20140207
  Receipt Date: 20140207
  Transmission Date: 20141002
  Serious: Yes (Hospitalization)
  Sender: FDA-Public Use
  Company Number: None

PATIENT
  Age: 40 Year
  Sex: Male

DRUGS (1)
  1. LIALDA [Suspect]
     Dosage: 4 TABLETS QD ORAL
     Route: 048
     Dates: start: 20140115, end: 20140201

REACTIONS (1)
  - Pancreatitis [None]
